FAERS Safety Report 8008320-9 (Version None)
Quarter: 2011Q4

REPORT INFORMATION
  Report Type: 
  Country: None (occurrence: None)
  Receive Date: 20111227
  Receipt Date: 20111220
  Transmission Date: 20120403
  Serious: Yes (Death, Hospitalization)
  Sender: FDA-Public Use
  Company Number: JP-ROCHE-749071

PATIENT
  Sex: Male

DRUGS (8)
  1. MYCOPHENOLATE MOFETIL (CELLCEPT) [Suspect]
     Indication: PROPHYLAXIS AGAINST TRANSPLANT REJECTION
     Route: 048
     Dates: start: 20040525, end: 20040525
  2. MYCOPHENOLATE MOFETIL (CELLCEPT) [Suspect]
     Route: 048
     Dates: start: 20040602, end: 20040603
  3. MYCOPHENOLATE MOFETIL (CELLCEPT) [Suspect]
     Route: 048
     Dates: start: 20040604, end: 20040604
  4. MYCOPHENOLATE MOFETIL (CELLCEPT) [Suspect]
     Route: 048
     Dates: start: 20040527, end: 20040527
  5. CYCLOSPORINE [Suspect]
     Indication: PRODUCT USED FOR UNKNOWN INDICATION
     Dosage: NOTE: 80 - 180 MG/DAY, FORM: INJECTION.
     Route: 042
     Dates: start: 20040521, end: 20040604
  6. METHYLPREDNISOLONE SODIUM SUCCINATE [Suspect]
     Indication: PRODUCT USED FOR UNKNOWN INDICATION
     Dosage: DOSE-20-1000 MG
     Route: 042
     Dates: start: 20040521, end: 20040606
  7. MYCOPHENOLATE MOFETIL (CELLCEPT) [Suspect]
     Route: 048
     Dates: start: 20040529, end: 20040531
  8. AZATHIOPRINE [Suspect]
     Indication: PRODUCT USED FOR UNKNOWN INDICATION
     Dosage: FORM: INJECTION, ROUTE: INTRAVENOUS (NOT OTHERWISE SPECIFIED)
     Route: 042
     Dates: start: 20040521, end: 20040527

REACTIONS (5)
  - PNEUMONIA [None]
  - PULMONARY OEDEMA [None]
  - PULMONARY VENOUS THROMBOSIS [None]
  - SEPSIS [None]
  - RESPIRATORY FAILURE [None]
